FAERS Safety Report 15339922 (Version 5)
Quarter: 2020Q3

REPORT INFORMATION
  Report Type: Report from Study
  Country: US (occurrence: US)
  Receive Date: 20180831
  Receipt Date: 20190227
  Transmission Date: 20201105
  Serious: Yes (Hospitalization, Other)
  Sender: FDA-Public Use
  Company Number: US-JNJFOC-20180814400

PATIENT
  Age: 64 Year
  Sex: Male
  Weight: 139 kg

DRUGS (6)
  1. DARATUMUMAB [Suspect]
     Active Substance: DARATUMUMAB
     Indication: PLASMA CELL MYELOMA
     Route: 058
     Dates: start: 20180806, end: 20180820
  2. MELPHALAN. [Concomitant]
     Active Substance: MELPHALAN
     Indication: PLASMA CELL MYELOMA
     Route: 065
  3. LENALIDOMIDE [Concomitant]
     Active Substance: LENALIDOMIDE
     Indication: PLASMA CELL MYELOMA
     Route: 065
  4. DEXAMETHASONE. [Concomitant]
     Active Substance: DEXAMETHASONE
     Indication: PLASMA CELL MYELOMA
     Route: 065
  5. VELCADE [Suspect]
     Active Substance: BORTEZOMIB
     Indication: PLASMA CELL MYELOMA
     Route: 058
     Dates: start: 20180809, end: 20180823
  6. DARATUMUMAB [Suspect]
     Active Substance: DARATUMUMAB
     Route: 058

REACTIONS (14)
  - Incoherent [Recovering/Resolving]
  - Hyperhidrosis [Unknown]
  - Asthenia [Recovered/Resolved]
  - Chills [Recovering/Resolving]
  - Pyrexia [Recovering/Resolving]
  - Incoherent [Recovering/Resolving]
  - Platelet count decreased [Unknown]
  - Hypotension [Recovering/Resolving]
  - Oxygen saturation decreased [Recovering/Resolving]
  - Hypoxia [Unknown]
  - Chills [Recovered/Resolved]
  - Nausea [Recovered/Resolved]
  - Pyrexia [Recovered/Resolved]
  - Vomiting [Recovered/Resolved]

NARRATIVE: CASE EVENT DATE: 20180809
